FAERS Safety Report 9809555 (Version 2)
Quarter: 2014Q1

REPORT INFORMATION
  Report Type: Spontaneous
  Country: US (occurrence: US)
  Receive Date: 20140110
  Receipt Date: 20140110
  Transmission Date: 20141002
  Serious: Yes (Other)
  Sender: FDA-Public Use
  Company Number: US-SANOFI-AVENTIS-2012SA008598

PATIENT
  Age: 54 Year
  Sex: Male
  Weight: 67.13 kg

DRUGS (14)
  1. PLAVIX [Suspect]
     Indication: CARDIOVASCULAR EVENT PROPHYLAXIS
     Route: 048
     Dates: start: 2008
  2. ASPIRIN [Suspect]
     Indication: CARDIOVASCULAR EVENT PROPHYLAXIS
     Dates: start: 2008
  3. ALL OTHER THERAPEUTIC PRODUCTS [Suspect]
     Dates: start: 20100330, end: 20110913
  4. BLINDED THERAPY [Suspect]
     Indication: DIABETIC RETINAL OEDEMA
     Dates: start: 20111109
  5. METOCLOPRAMIDE [Concomitant]
     Indication: GASTROOESOPHAGEAL REFLUX DISEASE
     Route: 048
     Dates: start: 2008
  6. HYDROCODONE [Concomitant]
     Indication: BACK PAIN
     Dosage: 7/500 QID PRN
     Route: 048
     Dates: start: 2008
  7. HYDROCHLOROTHIAZIDE [Concomitant]
     Indication: HYPERTENSION
     Route: 048
     Dates: start: 2008
  8. KEPPRA [Concomitant]
     Indication: CONVULSION
     Route: 048
     Dates: start: 2008
  9. ZOLOFT [Concomitant]
     Indication: DEPRESSION
     Route: 048
     Dates: start: 2008
  10. UNKNOWDRUG [Concomitant]
     Indication: HYPERCHOLESTEROLAEMIA
     Route: 048
     Dates: start: 2008
  11. GEMFIBROZIL [Concomitant]
     Indication: HYPERCHOLESTEROLAEMIA
  12. NOVOLIN [Concomitant]
     Indication: DIABETES MELLITUS
     Dosage: 11 UNITS QAM/QPM 14 UNITS QHS
     Route: 058
     Dates: start: 2008
  13. METFORMIN [Concomitant]
     Indication: DIABETES MELLITUS
     Route: 048
     Dates: start: 2008
  14. LISINOPRIL [Concomitant]
     Indication: HYPERTENSION
     Route: 048
     Dates: start: 2008

REACTIONS (1)
  - Vitreous haemorrhage [Recovered/Resolved]
